FAERS Safety Report 22839856 (Version 3)
Quarter: 2024Q3

REPORT INFORMATION
  Report Type: Spontaneous
  Country: US (occurrence: US)
  Receive Date: 20230818
  Receipt Date: 20240826
  Transmission Date: 20241016
  Serious: Yes (Other)
  Sender: PFIZER
  Company Number: US-PFIZER INC-PV202300141470

PATIENT
  Age: 44 Year
  Sex: Female

DRUGS (2)
  1. CIBINQO [Suspect]
     Active Substance: ABROCITINIB
     Dosage: 100 MG
  2. CIBINQO [Suspect]
     Active Substance: ABROCITINIB
     Dosage: 200 MG, 1X/DAY

REACTIONS (5)
  - Pyoderma [Unknown]
  - Hypertension [Recovering/Resolving]
  - Abdominal discomfort [Unknown]
  - Dermatitis atopic [Unknown]
  - Neurodermatitis [Unknown]
